FAERS Safety Report 19744152 (Version 1)
Quarter: 2021Q3

REPORT INFORMATION
  Report Type: Spontaneous
  Country: US (occurrence: US)
  Receive Date: 20210825
  Receipt Date: 20210825
  Transmission Date: 20211014
  Serious: No
  Sender: FDA-Public Use
  Company Number: US-SA-2021SA279497

PATIENT
  Age: 41 Year
  Sex: Female

DRUGS (1)
  1. DUPIXENT [Suspect]
     Active Substance: DUPILUMAB
     Indication: DERMATITIS ATOPIC
     Dosage: 300 MG, QOW
     Route: 058

REACTIONS (9)
  - Nasopharyngitis [Unknown]
  - Insomnia [Unknown]
  - Dermatitis atopic [Unknown]
  - Pruritus [Unknown]
  - Dry skin [Unknown]
  - Anxiety [Unknown]
  - Injection site pain [Unknown]
  - Skin fissures [Unknown]
  - Skin haemorrhage [Unknown]

NARRATIVE: CASE EVENT DATE: 20210816
